FAERS Safety Report 16100441 (Version 1)
Quarter: 2019Q1

REPORT INFORMATION
  Report Type: Spontaneous
  Country: US (occurrence: US)
  Receive Date: 20190321
  Receipt Date: 20190321
  Transmission Date: 20190418
  Serious: Yes (Hospitalization)
  Sender: FDA-Public Use
  Company Number: US-SA-2019SA074014

PATIENT

DRUGS (2)
  1. SOLOSTAR [Suspect]
     Active Substance: DEVICE
     Dosage: UNK UNK, UNK
     Route: 065
  2. SOLIQUA 100/33 [Suspect]
     Active Substance: INSULIN GLARGINE\LIXISENATIDE
     Dosage: UNK UNK, UNK
     Route: 065

REACTIONS (1)
  - Abdominal pain [Unknown]
